FAERS Safety Report 5320453-4 (Version None)
Quarter: 2007Q1

REPORT INFORMATION
  Report Type: 
  Country: None (occurrence: None)
  Receive Date: 20070215
  Receipt Date: 20061103
  Transmission Date: 20070707
  Serious: No
  Sender: FDA-Public Use
  Company Number: MC200600767

PATIENT
  Sex: Male

DRUGS (2)
  1. ANGIOMAX [Suspect]
     Indication: PERCUTANEOUS CORONARY INTERVENTION
     Dosage: BOLUS, IV BOLUS
     Route: 042
     Dates: start: 20061103, end: 20070213
  2. ANGIOMAX [Suspect]
     Indication: PERCUTANEOUS CORONARY INTERVENTION
     Dosage: BOLUS, IV BOLUS
     Route: 042
     Dates: start: 20061103

REACTIONS (1)
  - HAEMORRHAGE [None]
